FAERS Safety Report 20359318 (Version 1)
Quarter: 2022Q1

REPORT INFORMATION
  Report Type: Spontaneous
  Country: ES (occurrence: ES)
  Receive Date: 20220121
  Receipt Date: 20220121
  Transmission Date: 20220423
  Serious: Yes (Life-Threatening, Hospitalization)
  Sender: FDA-Public Use
  Company Number: None

PATIENT
  Age: 60 Year
  Sex: Female

DRUGS (5)
  1. BRIVUDINE [Suspect]
     Active Substance: BRIVUDINE
     Indication: Herpes zoster
     Route: 048
     Dates: start: 20211224, end: 20211225
  2. CAPECITABINE [Suspect]
     Active Substance: CAPECITABINE
     Indication: Colorectal cancer
     Dosage: 2 CADA 12 H
     Route: 048
     Dates: start: 20211214, end: 20211230
  3. TRAZODONE HYDROCHLORIDE [Concomitant]
     Active Substance: TRAZODONE HYDROCHLORIDE
     Indication: Insomnia
     Dosage: 1 CADA 24H
     Route: 048
     Dates: start: 20210615
  4. FAMOTIDINA [Concomitant]
     Indication: Gastrooesophageal reflux disease
     Route: 048
     Dates: start: 20211028
  5. REPAGLINIDE [Concomitant]
     Active Substance: REPAGLINIDE
     Indication: Diabetes mellitus
     Dosage: 2 CADA 8 HORAS
     Dates: start: 20201230

REACTIONS (4)
  - Pharyngeal inflammation [Unknown]
  - Vulvovaginal inflammation [Unknown]
  - Oesophagitis [Unknown]
  - Agranulocytosis [Unknown]

NARRATIVE: CASE EVENT DATE: 20211229
